FAERS Safety Report 9472722 (Version 1)
Quarter: 2013Q3

REPORT INFORMATION
  Report Type: Spontaneous
  Country: US (occurrence: None)
  Receive Date: 20130821
  Receipt Date: 20130821
  Transmission Date: 20140515
  Serious: Yes (Hospitalization)
  Sender: FDA-Public Use
  Company Number: None

PATIENT
  Age: 30 Year
  Sex: Male
  Weight: 88.4 kg

DRUGS (1)
  1. VANCOMYCIN [Suspect]
     Dates: start: 20130810, end: 20130812

REACTIONS (2)
  - Renal failure acute [None]
  - Hypotension [None]
